FAERS Safety Report 13752195 (Version 1)
Quarter: 2017Q3

REPORT INFORMATION
  Report Type: Spontaneous
  Country: CA (occurrence: CA)
  Receive Date: 20170713
  Receipt Date: 20170713
  Transmission Date: 20171127
  Serious: Yes (Hospitalization)
  Sender: FDA-Public Use
  Company Number: CA-CIPHER-2017-CA-000613

PATIENT
  Sex: Female

DRUGS (12)
  1. MOTRIN [Suspect]
     Active Substance: IBUPROFEN
  2. ARAVA [Suspect]
     Active Substance: LEFLUNOMIDE
     Indication: RHEUMATOID ARTHRITIS
     Route: 065
  3. PLAQUENIL [Suspect]
     Active Substance: HYDROXYCHLOROQUINE SULFATE
  4. DICLOFENAC [Suspect]
     Active Substance: DICLOFENAC
     Indication: RHEUMATOID ARTHRITIS
     Route: 065
  5. ASPIRIN. [Suspect]
     Active Substance: ASPIRIN
     Indication: RHEUMATOID ARTHRITIS
     Route: 065
  6. TRAMADOL HYDROCHLORIDE. [Suspect]
     Active Substance: TRAMADOL HYDROCHLORIDE
  7. HUMIRA [Suspect]
     Active Substance: ADALIMUMAB
  8. ENBREL [Suspect]
     Active Substance: ETANERCEPT
     Indication: RHEUMATOID ARTHRITIS
     Route: 065
  9. NAPROSYN [Suspect]
     Active Substance: NAPROXEN
  10. GOLD [Suspect]
     Active Substance: GOLD
     Indication: RHEUMATOID ARTHRITIS
     Route: 065
  11. METHOTREXATE. [Suspect]
     Active Substance: METHOTREXATE
  12. PLAQUENIL [Suspect]
     Active Substance: HYDROXYCHLOROQUINE SULFATE

REACTIONS (13)
  - Vomiting [Unknown]
  - Headache [Unknown]
  - Abdominal discomfort [Unknown]
  - Decreased appetite [Unknown]
  - Off label use [Unknown]
  - Nausea [Unknown]
  - Pharyngitis [Unknown]
  - Deafness [Unknown]
  - Eating disorder [Unknown]
  - Abdominal pain upper [Unknown]
  - Weight decreased [Unknown]
  - Dizziness [Unknown]
  - Ear infection [Unknown]
